FAERS Safety Report 25856133 (Version 1)
Quarter: 2025Q3

REPORT INFORMATION
  Report Type: Spontaneous
  Country: US (occurrence: US)
  Receive Date: 20250928
  Receipt Date: 20250928
  Transmission Date: 20251020
  Serious: No
  Sender: SANOFI AVENTIS
  Company Number: US-SA-2025SA288566

PATIENT
  Sex: Female
  Weight: 79.55 kg

DRUGS (7)
  1. CEREZYME [Suspect]
     Active Substance: IMIGLUCERASE
     Indication: Gaucher^s disease
     Dosage: 4000 U, QOW
     Route: 042
  2. EPINEPHRINE [Concomitant]
     Active Substance: EPINEPHRINE
  3. STERILE WATER [Concomitant]
     Active Substance: WATER
  4. SODIUM CHLORIDE [Concomitant]
     Active Substance: SODIUM CHLORIDE
  5. ETHINYL ESTRADIOL\NORELGESTROMIN [Concomitant]
     Active Substance: ETHINYL ESTRADIOL\NORELGESTROMIN
  6. SODIUM CHLORIDE [Concomitant]
     Active Substance: SODIUM CHLORIDE
  7. XANAX [Concomitant]
     Active Substance: ALPRAZOLAM

REACTIONS (1)
  - Gastric infection [Unknown]
